FAERS Safety Report 8438185-2 (Version None)
Quarter: 2012Q2

REPORT INFORMATION
  Report Type: 
  Country: None (occurrence: None)
  Receive Date: 20120614
  Receipt Date: 20120606
  Transmission Date: 20120825
  Serious: Yes (Hospitalization)
  Sender: FDA-Public Use
  Company Number: JP-BAXTER-2012BAX008368

PATIENT
  Age: 4 Year
  Sex: Female

DRUGS (8)
  1. ELSPAR [Suspect]
  2. PIRARUBICIN [Suspect]
  3. VINCRISTINE SULFATE [Suspect]
  4. CYTARABINE [Suspect]
  5. MERCAPTOPURINE [Suspect]
  6. PREDNISOLONE [Suspect]
  7. CYCLOPHOSPHAMIDE [Suspect]
  8. METHOTREXATE [Suspect]

REACTIONS (3)
  - INFLUENZA [None]
  - PNEUMONIA BACTERIAL [None]
  - BLOOD IMMUNOGLOBULIN G DECREASED [None]
